FAERS Safety Report 19212692 (Version 1)
Quarter: 2021Q2

REPORT INFORMATION
  Report Type: Spontaneous
  Country: CN (occurrence: CN)
  Receive Date: 20210504
  Receipt Date: 20210504
  Transmission Date: 20210717
  Serious: Yes (Hospitalization, Other)
  Sender: FDA-Public Use
  Company Number: CN-GLAXOSMITHKLINE-CNCH2021APC024855

PATIENT
  Age: 81 Year
  Sex: Female

DRUGS (1)
  1. FENBID (IBUPROFEN) [Suspect]
     Active Substance: IBUPROFEN
     Indication: ABDOMINAL PAIN
     Dosage: 0.4 G, BID
     Route: 048
     Dates: start: 20210101, end: 20210416

REACTIONS (2)
  - Abdominal pain [Recovered/Resolved]
  - Gastric ulcer [Unknown]

NARRATIVE: CASE EVENT DATE: 20210416
